FAERS Safety Report 25569105 (Version 1)
Quarter: 2025Q3

REPORT INFORMATION
  Report Type: Spontaneous
  Country: US (occurrence: US)
  Receive Date: 20250716
  Receipt Date: 20250716
  Transmission Date: 20251021
  Serious: No
  Sender: Alora Pharma
  Company Number: US-SUNNY-2025ALO02120

PATIENT
  Age: 37 Year
  Sex: Female

DRUGS (1)
  1. NITROFURANTOIN [Suspect]
     Active Substance: NITROFURANTOIN
     Indication: Urinary tract infection
     Dosage: 100 MG, EVERY 12 HOURS
     Route: 048
     Dates: start: 20250317

REACTIONS (4)
  - Abdominal discomfort [Recovering/Resolving]
  - Nausea [Recovering/Resolving]
  - Unevaluable event [Recovering/Resolving]
  - Product label confusion [Unknown]

NARRATIVE: CASE EVENT DATE: 20250301
